FAERS Safety Report 7552807-X (Version None)
Quarter: 2011Q2

REPORT INFORMATION
  Report Type: 
  Country: None (occurrence: None)
  Receive Date: 20110616
  Receipt Date: 20110615
  Transmission Date: 20111010
  Serious: Yes (Other)
  Sender: FDA-Public Use
  Company Number: US-PFIZER INC-2011131864

PATIENT
  Sex: Male
  Weight: 82 kg

DRUGS (4)
  1. XANAX [Interacting]
     Indication: ANXIETY
     Dosage: 0.5 MG, 2X/DAY
     Route: 048
  2. CHANTIX [Interacting]
     Dosage: 1 MG, 2X/DAY
     Dates: start: 20110101
  3. CHANTIX [Suspect]
     Indication: SMOKING CESSATION THERAPY
     Dosage: 0.5 MG, 1X/DAY
     Route: 048
     Dates: start: 20110401, end: 20110101
  4. VICODIN [Concomitant]
     Indication: PAIN
     Dosage: 5/325, EVERY 6 TO 8 HOURS
     Route: 048

REACTIONS (4)
  - MOOD SWINGS [None]
  - DRUG INTERACTION [None]
  - DEPRESSION [None]
  - SUICIDAL IDEATION [None]
